FAERS Safety Report 13900049 (Version 2)
Quarter: 2017Q3

REPORT INFORMATION
  Report Type: Spontaneous
  Country: FR (occurrence: FR)
  Receive Date: 20170824
  Receipt Date: 20170831
  Transmission Date: 20171127
  Serious: Yes (Other)
  Sender: FDA-Public Use
  Company Number: FR-PFIZER INC-2017362041

PATIENT
  Age: 61 Year
  Sex: Male

DRUGS (2)
  1. GEMZAR [Suspect]
     Active Substance: GEMCITABINE HYDROCHLORIDE
     Indication: BLADDER TRANSITIONAL CELL CARCINOMA METASTATIC
     Dosage: 1250 MG/M2, CYCLIC (DAYS 1 AND 8)
  2. CISPLATIN. [Concomitant]
     Active Substance: CISPLATIN
     Indication: BLADDER TRANSITIONAL CELL CARCINOMA METASTATIC
     Dosage: 100 MG/M2, CYCLIC (AT DAY 1 WITH DAY 1 = DAY 21, 4 CYCLES)

REACTIONS (3)
  - Thrombotic microangiopathy [Recovered/Resolved]
  - Peripheral ischaemia [Recovered/Resolved]
  - Extremity necrosis [Recovered/Resolved]
